FAERS Safety Report 14031241 (Version 4)
Quarter: 2018Q1

REPORT INFORMATION
  Report Type: Spontaneous
  Country: FI (occurrence: FI)
  Receive Date: 20171003
  Receipt Date: 20180318
  Transmission Date: 20180508
  Serious: Yes (Other)
  Sender: FDA-Public Use
  Company Number: FI-AMGEN-FINSP2017148393

PATIENT
  Age: 28 Year
  Sex: Male

DRUGS (8)
  1. ARCOXIA [Concomitant]
     Active Substance: ETORICOXIB
     Dosage: UNK
  2. SERETIDE [Concomitant]
     Active Substance: FLUTICASONE PROPIONATE\SALMETEROL XINAFOATE
     Dosage: UNK
  3. ENBREL [Suspect]
     Active Substance: ETANERCEPT
     Indication: ANKYLOSING SPONDYLITIS
     Dosage: 25 MG, WEEKLY
     Route: 065
     Dates: start: 2006, end: 2011
  4. ENBREL [Suspect]
     Active Substance: ETANERCEPT
     Dosage: 50 MG, WEEKLY
     Route: 065
     Dates: start: 2011
  5. VENTOLINE [Concomitant]
     Active Substance: ALBUTEROL
     Dosage: UNK
  6. ESOMEPRAZOL [Concomitant]
     Active Substance: ESOMEPRAZOLE
     Dosage: UNK
  7. FLIXOTIDE [Concomitant]
     Active Substance: FLUTICASONE PROPIONATE
     Dosage: UNK
  8. DYMISTA [Concomitant]
     Active Substance: AZELASTINE HYDROCHLORIDE\FLUTICASONE PROPIONATE
     Dosage: UNK

REACTIONS (5)
  - Infection susceptibility increased [Unknown]
  - Nasopharyngitis [Unknown]
  - Condition aggravated [Unknown]
  - Ankylosing spondylitis [Unknown]
  - Infection [Unknown]
